FAERS Safety Report 6654605-8 (Version None)
Quarter: 2010Q1

REPORT INFORMATION
  Report Type: 
  Country: None (occurrence: None)
  Receive Date: 20100326
  Receipt Date: 20100322
  Transmission Date: 20100710
  Serious: Yes (Hospitalization)
  Sender: FDA-Public Use
  Company Number: KE-GILEAD-2010-0028040

PATIENT
  Age: 59 Year
  Sex: Male
  Weight: 65 kg

DRUGS (7)
  1. TRUVADA [Suspect]
     Indication: HIV INFECTION
     Route: 048
     Dates: start: 20090616, end: 20100301
  2. EFAVIRENZ [Suspect]
     Indication: HIV INFECTION
     Dates: start: 20090616, end: 20100301
  3. METFORMIN HYDROCHLORIDE [Concomitant]
  4. SEPTRIN [Concomitant]
  5. DIABINESE [Concomitant]
  6. ENALAPRIL MALEATE [Concomitant]
  7. RIFAFOUR [Concomitant]

REACTIONS (1)
  - CARDIAC FAILURE CONGESTIVE [None]
